FAERS Safety Report 22100918 (Version 1)
Quarter: 2023Q1

REPORT INFORMATION
  Report Type: Other
  Country: US (occurrence: None)
  Receive Date: 20230316
  Receipt Date: 20230316
  Transmission Date: 20230418
  Serious: Yes (Death)
  Sender: FDA-Public Use
  Company Number: US-ROCHE-3245288

PATIENT
  Age: 77 Year
  Sex: Female

DRUGS (2)
  1. ZELBORAF [Suspect]
     Active Substance: VEMURAFENIB
     Indication: Thyroid cancer
     Dosage: TAKE 4 TABLETS BY MOUTH 960 MG IN THE MORNING AND TAKE 4 TABLETS BY MOUTH 960 MG BEFORE BEDTIME
     Route: 048
  2. COTELLIC [Suspect]
     Active Substance: COBIMETINIB
     Indication: Thyroid cancer
     Dosage: TAKE 3 TABLETS BY MOUTH 60 MG EVERY MORNING FOR 21 DAYS THEN 7 DAYS OFF, REPEAT. TAKE WITH OR WITHOU
     Route: 048

REACTIONS (4)
  - Aphasia [Unknown]
  - Off label use [Unknown]
  - Influenza [Unknown]
  - Death [Fatal]

NARRATIVE: CASE EVENT DATE: 20230308
